FAERS Safety Report 8844761 (Version 1)
Quarter: 2012Q4

REPORT INFORMATION
  Report Type: 
  Country: IN (occurrence: IN)
  Receive Date: 20121017
  Receipt Date: 20121017
  Transmission Date: 20130627
  Serious: Yes (Death)
  Sender: FDA-Public Use
  Company Number: PHHY2012IN091791

PATIENT
  Age: 52 Year
  Sex: Female

DRUGS (1)
  1. EXELON PATCH [Suspect]
     Indication: SCHIZOPHRENIA
     Dosage: 4.6 mg, UNK
     Route: 062
     Dates: start: 201203

REACTIONS (1)
  - Death [Fatal]
